FAERS Safety Report 16927125 (Version 6)
Quarter: 2019Q4

REPORT INFORMATION
  Report Type: Spontaneous
  Country: CO (occurrence: CO)
  Receive Date: 20191016
  Receipt Date: 20191221
  Transmission Date: 20200122
  Serious: Yes (Death, Life-Threatening, Hospitalization, Other)
  Sender: FDA-Public Use
  Company Number: CO-UNITED THERAPEUTICS-UNT-2019-016405

PATIENT

DRUGS (9)
  1. AMBRISENTAN [Concomitant]
     Active Substance: AMBRISENTAN
     Indication: PULMONARY HYPERTENSION
     Dosage: 10 MG, QD
     Route: 048
     Dates: start: 2017
  2. REMODULIN [Suspect]
     Active Substance: TREPROSTINIL
     Dosage: 0.028 ?G/KG, CONTINUING (INFUSION RATE OF 0.034ML/H)
     Route: 058
  3. ENALAPRIL [Concomitant]
     Active Substance: ENALAPRIL
     Indication: CARDIAC DISORDER
     Dosage: 2.5 MG, QD
     Route: 048
     Dates: start: 201812
  4. REMODULIN [Suspect]
     Active Substance: TREPROSTINIL
     Dosage: 0.030 ?G/KG, CONTINUING (INFUSION RATE OF 0.036 ML/H)
     Route: 058
  5. REMODULIN [Suspect]
     Active Substance: TREPROSTINIL
     Indication: PULMONARY HYPERTENSION
     Dosage: 0.002 ?G/KG, CONTINUING
     Route: 058
     Dates: start: 20181009
  6. REMODULIN [Suspect]
     Active Substance: TREPROSTINIL
     Dosage: 0.026 ?G/KG, CONTINUING (CONTINUOUS INFUSION RATE OF 0.030ML/H)
     Route: 058
  7. REMODULIN [Suspect]
     Active Substance: TREPROSTINIL
     Dosage: 0.036 ?G/KG, CONTINUING (INFUSION RATE OF 0.036 ML/H)
     Route: 058
  8. SILDENAFIL. [Concomitant]
     Active Substance: SILDENAFIL
     Indication: PULMONARY HYPERTENSION
     Dosage: 50 MG, BID
     Route: 048
     Dates: start: 2017
  9. FUROSEMIDA [Concomitant]
     Active Substance: FUROSEMIDE
     Indication: CARDIAC DISORDER
     Dosage: 40 MG, QD
     Route: 048
     Dates: start: 201812

REACTIONS (25)
  - Anal incontinence [Unknown]
  - Haemoptysis [Not Recovered/Not Resolved]
  - Hypoxia [Fatal]
  - Vomiting [Fatal]
  - Platelet count decreased [Unknown]
  - Catheter site pain [Recovered/Resolved]
  - Device adhesion issue [Unknown]
  - Catheter site injury [Recovered/Resolved]
  - Hypotension [Fatal]
  - Syncope [Unknown]
  - Influenza [Recovered/Resolved]
  - Nausea [Unknown]
  - Respiratory tract infection [Recovered/Resolved]
  - Infusion site laceration [Recovered/Resolved]
  - Device dislocation [Unknown]
  - Catheter site discharge [Recovered/Resolved]
  - Haemodynamic instability [Fatal]
  - Cardio-respiratory arrest [Fatal]
  - Cardiac failure [Fatal]
  - Diarrhoea [Unknown]
  - Catheter site induration [Recovered/Resolved]
  - Disease progression [Fatal]
  - Pulmonary haemorrhage [Not Recovered/Not Resolved]
  - Catheter site erythema [Recovered/Resolved]
  - Catheter site pruritus [Recovered/Resolved]

NARRATIVE: CASE EVENT DATE: 2019
